FAERS Safety Report 24270337 (Version 1)
Quarter: 2024Q3

REPORT INFORMATION
  Report Type: Report from Study
  Country: US (occurrence: US)
  Receive Date: 20240830
  Receipt Date: 20240830
  Transmission Date: 20241017
  Serious: Yes (Other)
  Sender: ASTELLAS
  Company Number: US-ASTELLAS-2024-AER-001773

PATIENT
  Age: 59 Year
  Sex: Male

DRUGS (3)
  1. ENZALUTAMIDE [Suspect]
     Active Substance: ENZALUTAMIDE
     Indication: Product used for unknown indication
     Route: 065
  2. BOTOX [Suspect]
     Active Substance: ONABOTULINUMTOXINA
     Indication: Product used for unknown indication
     Dosage: 1000 TIMES WORST
     Route: 065
  3. ORGOVYX [Concomitant]
     Active Substance: RELUGOLIX
     Indication: Prostate cancer
     Dosage: DAILY
     Route: 065
     Dates: start: 20230628

REACTIONS (9)
  - Diabetes mellitus [Unknown]
  - Neuropathy peripheral [Unknown]
  - Incontinence [Unknown]
  - Intervertebral disc disorder [Unknown]
  - Fatigue [Unknown]
  - Insomnia [Unknown]
  - Pain [Unknown]
  - Ill-defined disorder [Unknown]
  - Radiation injury [Unknown]
